FAERS Safety Report 9333723 (Version 1)
Quarter: 2013Q2

REPORT INFORMATION
  Report Type: Spontaneous
  Country: FR (occurrence: FR)
  Receive Date: 20130606
  Receipt Date: 20130606
  Transmission Date: 20140414
  Serious: Yes (Hospitalization)
  Sender: FDA-Public Use
  Company Number: FR-TEVA-409125ISR

PATIENT
  Age: 49 Year
  Sex: Female

DRUGS (2)
  1. ESTREVA [Suspect]
     Indication: HORMONE REPLACEMENT THERAPY
     Dates: end: 2004
  2. COLPRONE 5 MG [Suspect]
     Indication: HORMONE REPLACEMENT THERAPY
     Route: 048
     Dates: end: 2004

REACTIONS (4)
  - Deep vein thrombosis [Recovered/Resolved]
  - Subclavian vein thrombosis [Recovered/Resolved]
  - Jugular vein distension [Recovered/Resolved]
  - Thoracic outlet syndrome [Recovered/Resolved]
